FAERS Safety Report 6237310-1 (Version None)
Quarter: 2009Q2

REPORT INFORMATION
  Report Type: 
  Country: None (occurrence: None)
  Receive Date: 20090619
  Receipt Date: 20090608
  Transmission Date: 20091009
  Serious: Yes (Other)
  Sender: FDA-Public Use
  Company Number: IL-GENENTECH-285118

PATIENT
  Age: 69 Year
  Sex: Female

DRUGS (2)
  1. TRASTUZUMAB [Suspect]
     Indication: BREAST CANCER METASTATIC
     Dosage: UNK
     Route: 065
  2. CAPECITABINE [Suspect]
     Indication: BREAST CANCER METASTATIC
     Dosage: 1675 MG/M2, D1-14/Q3W
     Route: 048

REACTIONS (1)
  - HYPERTRIGLYCERIDAEMIA [None]
